FAERS Safety Report 10072264 (Version 1)
Quarter: 2014Q2

REPORT INFORMATION
  Report Type: Spontaneous
  Country: US (occurrence: None)
  Receive Date: 20140410
  Receipt Date: 20140410
  Transmission Date: 20141212
  Serious: Yes (Other)
  Sender: FDA-Public Use
  Company Number: None

PATIENT
  Age: 37 Year
  Sex: Female

DRUGS (2)
  1. MAKENA [Suspect]
     Indication: PREMATURE BABY
     Route: 030
     Dates: start: 20140318, end: 20140408
  2. MAKENA [Suspect]
     Indication: PROPHYLAXIS
     Route: 030
     Dates: start: 20140318, end: 20140408

REACTIONS (1)
  - Adverse drug reaction [None]
